FAERS Safety Report 7622734-8 (Version None)
Quarter: 2011Q3

REPORT INFORMATION
  Report Type: 
  Country: None (occurrence: None)
  Receive Date: 20110701
  Receipt Date: 20100723
  Transmission Date: 20111222
  Serious: Yes (Other)
  Sender: FDA-Public Use
  Company Number: 7012135

PATIENT
  Age: 41 Year
  Sex: Female

DRUGS (2)
  1. ALEVE [Concomitant]
  2. REBIF [Suspect]
     Indication: MULTIPLE SCLEROSIS
     Dosage: 44 MCG, 3 IN 1 WK, SUBCUTANEOUS
     Route: 058
     Dates: start: 20090924

REACTIONS (12)
  - SUICIDAL IDEATION [None]
  - INJECTION SITE PAIN [None]
  - HYPERHIDROSIS [None]
  - FEELING DRUNK [None]
  - BALANCE DISORDER [None]
  - FATIGUE [None]
  - TRISMUS [None]
  - MEMORY IMPAIRMENT [None]
  - INSOMNIA [None]
  - HEADACHE [None]
  - SLUGGISHNESS [None]
  - NOCTURIA [None]
